FAERS Safety Report 6759049-6 (Version None)
Quarter: 2010Q2

REPORT INFORMATION
  Report Type: 
  Country: None (occurrence: None)
  Receive Date: 20100607
  Receipt Date: 20100528
  Transmission Date: 20101027
  Serious: Yes (Other)
  Sender: FDA-Public Use
  Company Number: CA-BAYER-201016146BCC

PATIENT
  Age: 71 Year
  Sex: Male

DRUGS (7)
  1. ASPIRIN [Suspect]
     Indication: DRUG USE FOR UNKNOWN INDICATION
     Route: 048
  2. COUMADIN [Concomitant]
     Dosage: 2 TABLETS EVERY WEEK
     Route: 048
  3. COUMADIN [Concomitant]
     Dosage: 5 TABLETS EVERY WEEK
     Route: 048
  4. PENNSAID [Concomitant]
     Dosage: UNIT DOSE: 6 GTT
     Route: 061
  5. PENNSAID [Concomitant]
     Dosage: UNIT DOSE: 6 GTT
     Route: 061
  6. CRESTOR [Concomitant]
     Route: 048
  7. RAMIPRIL [Concomitant]
     Route: 048

REACTIONS (2)
  - EPISTAXIS [None]
  - INTERNATIONAL NORMALISED RATIO INCREASED [None]
